FAERS Safety Report 16140255 (Version 2)
Quarter: 2019Q2

REPORT INFORMATION
  Report Type: Spontaneous
  Country: US (occurrence: US)
  Receive Date: 20190330
  Receipt Date: 20190507
  Transmission Date: 20190711
  Serious: Yes (Other)
  Sender: FDA-Public Use
  Company Number: PHEH2019US012941

PATIENT
  Age: 6 Year
  Sex: Male
  Weight: 40 kg

DRUGS (1)
  1. KYMRIAH [Suspect]
     Active Substance: TISAGENLECLEUCEL
     Dosage: 40 ML, ONCE/SINGLE
     Route: 042
     Dates: start: 20190215, end: 20190215

REACTIONS (3)
  - Malignant neoplasm progression [Not Recovered/Not Resolved]
  - Acute lymphocytic leukaemia (in remission) [Not Recovered/Not Resolved]
  - Drug ineffective [Not Recovered/Not Resolved]

NARRATIVE: CASE EVENT DATE: 20190315
